FAERS Safety Report 13083876 (Version 1)
Quarter: 2017Q1

REPORT INFORMATION
  Report Type: Report from Study
  Country: BE (occurrence: BE)
  Receive Date: 20170104
  Receipt Date: 20170104
  Transmission Date: 20170428
  Serious: Yes (Other)
  Sender: FDA-Public Use
  Company Number: BE-ROCHE-1874473

PATIENT

DRUGS (2)
  1. CAPECITABINE. [Suspect]
     Active Substance: CAPECITABINE
     Indication: NEOPLASM MALIGNANT
     Route: 048
  2. EPO906 [Suspect]
     Active Substance: PATUPILONE
     Indication: NEOPLASM MALIGNANT
     Route: 042

REACTIONS (1)
  - Haematotoxicity [Unknown]
